FAERS Safety Report 14572376 (Version 4)
Quarter: 2018Q2

REPORT INFORMATION
  Report Type: Spontaneous
  Country: CA (occurrence: CA)
  Receive Date: 20180226
  Receipt Date: 20180424
  Transmission Date: 20180711
  Serious: Yes (Other)
  Sender: FDA-Public Use
  Company Number: CA-PFIZER INC-2018070455

PATIENT
  Age: 55 Year
  Sex: Female

DRUGS (4)
  1. LIDOCAINE HCL [Suspect]
     Active Substance: LIDOCAINE HYDROCHLORIDE
     Dosage: UNK, WEEKLY (INFUSIONS ON TUESDAYS)
     Route: 042
  2. METHADONE [Concomitant]
     Active Substance: METHADONE HYDROCHLORIDE
     Dosage: 1 MG, UNK
  3. INDOMETHACIN. [Concomitant]
     Active Substance: INDOMETHACIN
     Dosage: 50 MG, 2X/DAY
  4. HUMIRA [Concomitant]
     Active Substance: ADALIMUMAB
     Dosage: 40 MG, CYCLIC (EVERY 14 DAYS)
     Dates: start: 201210

REACTIONS (6)
  - Anxiety [Unknown]
  - Vein disorder [Unknown]
  - Condition aggravated [Unknown]
  - Gallbladder disorder [Unknown]
  - Ankylosing spondylitis [Unknown]
  - Periarthritis [Not Recovered/Not Resolved]
